FAERS Safety Report 9619462 (Version 2)
Quarter: 2013Q4

REPORT INFORMATION
  Report Type: Report from Study
  Country: BR (occurrence: BR)
  Receive Date: 20131014
  Receipt Date: 20131113
  Transmission Date: 20140711
  Serious: Yes (Other)
  Sender: FDA-Public Use
  Company Number: BR-ABBVIE-13P-020-1155959-00

PATIENT
  Age: 28 Year
  Sex: Male
  Weight: 60 kg

DRUGS (3)
  1. HUMIRA [Suspect]
     Indication: CROHN^S DISEASE
     Route: 058
     Dates: start: 20100901, end: 20130212
  2. HUMIRA [Suspect]
     Route: 058
  3. AZATHIOPRINE [Concomitant]
     Indication: CROHN^S DISEASE
     Route: 048
     Dates: start: 20090101

REACTIONS (7)
  - Fistula [Recovering/Resolving]
  - Abscess [Recovering/Resolving]
  - Crohn^s disease [Unknown]
  - Influenza [Recovered/Resolved]
  - Malnutrition [Unknown]
  - Pain [Recovered/Resolved]
  - Unevaluable event [Unknown]
